FAERS Safety Report 26009155 (Version 1)
Quarter: 2025Q4

REPORT INFORMATION
  Report Type: Spontaneous
  Country: US (occurrence: US)
  Receive Date: 20251107
  Receipt Date: 20251107
  Transmission Date: 20260119
  Serious: Yes (Death, Hospitalization, Other)
  Sender: ALEXION PHARMACEUTICALS
  Company Number: US-AstraZeneca-CH-00986771A

PATIENT
  Sex: Male

DRUGS (1)
  1. BREZTRI [Suspect]
     Active Substance: BUDESONIDE\FORMOTEROL\GLYCOPYRROLATE
     Indication: Chronic obstructive pulmonary disease

REACTIONS (7)
  - Dysuria [Unknown]
  - Pneumonia [Unknown]
  - Septic shock [Fatal]
  - Renal impairment [Fatal]
  - Atrial fibrillation [Fatal]
  - Haemorrhage [Unknown]
  - Chronic obstructive pulmonary disease [Unknown]
